FAERS Safety Report 20746005 (Version 1)
Quarter: 2022Q2

REPORT INFORMATION
  Report Type: Spontaneous
  Country: HR (occurrence: HR)
  Receive Date: 20220425
  Receipt Date: 20220425
  Transmission Date: 20220720
  Serious: Yes (Death, Hospitalization, Other)
  Sender: FDA-Public Use
  Company Number: HR-BAYER-2022A058149

PATIENT
  Age: 92 Year
  Sex: Female
  Weight: 58 kg

DRUGS (9)
  1. RIVAROXABAN [Suspect]
     Active Substance: RIVAROXABAN
     Indication: Atrial fibrillation
     Dosage: 20 MG
     Route: 048
  2. BISOPROLOL [Concomitant]
     Active Substance: BISOPROLOL
     Dosage: 2.5 MG
  3. BISOPROLOL [Concomitant]
     Active Substance: BISOPROLOL
     Dosage: 1.25 UNK
  4. RAMIPRIL [Concomitant]
     Active Substance: RAMIPRIL
  5. ATORVASTATIN [Concomitant]
     Active Substance: ATORVASTATIN
  6. TRIMETAZIDINE [Concomitant]
     Active Substance: TRIMETAZIDINE
  7. PANTOPRAZOLE [Concomitant]
     Active Substance: PANTOPRAZOLE
  8. FUROSEMIDE [Concomitant]
     Active Substance: FUROSEMIDE
  9. EPLERENONE [Concomitant]
     Active Substance: EPLERENONE

REACTIONS (11)
  - Peripheral embolism [Unknown]
  - Traumatic fracture [Unknown]
  - Pulmonary oedema [Unknown]
  - General physical condition abnormal [Recovering/Resolving]
  - Tachypnoea [Unknown]
  - Mobility decreased [Unknown]
  - General physical health deterioration [Unknown]
  - Respiratory failure [Unknown]
  - Cardiac failure [Unknown]
  - Multiple organ dysfunction syndrome [Fatal]
  - Unresponsive to stimuli [Unknown]

NARRATIVE: CASE EVENT DATE: 20160101
